FAERS Safety Report 13878410 (Version 1)
Quarter: 2017Q3

REPORT INFORMATION
  Report Type: Spontaneous
  Country: US (occurrence: US)
  Receive Date: 20170817
  Receipt Date: 20170817
  Transmission Date: 20171127
  Serious: No
  Sender: FDA-Public Use
  Company Number: US-ROCHE-1885612

PATIENT
  Sex: Female
  Weight: 62.65 kg

DRUGS (2)
  1. PEGASYS [Suspect]
     Active Substance: PEGINTERFERON ALFA-2A
     Indication: HEPATITIS C
     Route: 065
     Dates: start: 2009, end: 2010
  2. RIBAVIRIN. [Suspect]
     Active Substance: RIBAVIRIN
     Indication: HEPATITIS C
     Dosage: THINKS 4 TIMES A DAY
     Route: 048
     Dates: start: 2009, end: 2010

REACTIONS (24)
  - Chills [Unknown]
  - Influenza like illness [Unknown]
  - Gastrointestinal disorder [Unknown]
  - Dyspnoea [Unknown]
  - Fatigue [Unknown]
  - Poor quality sleep [Unknown]
  - Headache [Unknown]
  - Neuropathy peripheral [Unknown]
  - Feeling abnormal [Unknown]
  - Arthralgia [Unknown]
  - Skin disorder [Unknown]
  - Pyrexia [Unknown]
  - Dizziness [Unknown]
  - Visual impairment [Unknown]
  - Sexual dysfunction [Unknown]
  - Anaemia [Unknown]
  - Tremor [Unknown]
  - Cognitive disorder [Unknown]
  - Amnesia [Unknown]
  - Myalgia [Unknown]
  - Body height decreased [Unknown]
  - Confusional state [Unknown]
  - Sinusitis [Unknown]
  - Mood swings [Unknown]
